FAERS Safety Report 8911262 (Version 3)
Quarter: 2016Q1

REPORT INFORMATION
  Report Type: Spontaneous
  Country: US (occurrence: US)
  Receive Date: 20121116
  Receipt Date: 20160201
  Transmission Date: 20160526
  Serious: Yes (Other)
  Sender: FDA-Public Use
  Company Number: US-BRISTOL-MYERS SQUIBB COMPANY-17104225

PATIENT
  Sex: Female

DRUGS (2)
  1. BARACLUDE [Suspect]
     Active Substance: ENTECAVIR
     Indication: PRODUCT USED FOR UNKNOWN INDICATION
     Dosage: 0.5 MG, QD
     Route: 050
     Dates: start: 20120117
  2. VIAGRA [Concomitant]
     Active Substance: SILDENAFIL CITRATE
     Indication: PRODUCT USED FOR UNKNOWN INDICATION
     Dosage: 100 MG, PRN
     Route: 050

REACTIONS (4)
  - Abortion spontaneous [Unknown]
  - Infertility [Unknown]
  - In vitro fertilisation [Unknown]
  - Exposure via body fluid [Unknown]

NARRATIVE: CASE EVENT DATE: 20121103
